FAERS Safety Report 14355725 (Version 4)
Quarter: 2018Q1

REPORT INFORMATION
  Report Type: Spontaneous
  Country: US (occurrence: US)
  Receive Date: 20180105
  Receipt Date: 20180228
  Transmission Date: 20180509
  Serious: Yes (Hospitalization)
  Sender: FDA-Public Use
  Company Number: US-PFIZER INC-2018003180

PATIENT
  Age: 74 Year
  Sex: Female

DRUGS (2)
  1. NITROGLYCERIN. [Suspect]
     Active Substance: NITROGLYCERIN
     Indication: CHEST PAIN
     Dosage: UNK
  2. NITROGLYCERIN. [Suspect]
     Active Substance: NITROGLYCERIN
     Dosage: 0.4 MG, AS NEEDED (DISSOLVE 1 TABLET EVERY 5 MINUTES AS NEEDED FOR CHEST PAIN)
     Route: 060
     Dates: end: 20171218

REACTIONS (2)
  - Drug ineffective [Unknown]
  - Drug intolerance [Unknown]
